FAERS Safety Report 18483815 (Version 4)
Quarter: 2024Q1

REPORT INFORMATION
  Report Type: Spontaneous
  Country: DE (occurrence: DE)
  Receive Date: 20201109
  Receipt Date: 20240215
  Transmission Date: 20240410
  Serious: Yes (Other)
  Sender: FDA-Public Use
  Company Number: DE-GLAXOSMITHKLINE-DE2020EME200993

PATIENT
  Age: 77 Year
  Sex: Female
  Weight: 80 kg

DRUGS (15)
  1. RISPERIDONE [Suspect]
     Active Substance: RISPERIDONE
     Indication: Delusional disorder, unspecified type
     Dosage: 1.5 MILLIGRAM, DAILY (2MG)
     Route: 065
  2. RISPERIDONE [Suspect]
     Active Substance: RISPERIDONE
     Dosage: 2 MILLIGRAM, DAILY
     Route: 065
  3. OLANZAPINE [Interacting]
     Active Substance: OLANZAPINE
     Indication: Delusional disorder, unspecified type
     Dosage: 15 MILLIGRAM, DAILY
     Route: 048
  4. OLANZAPINE [Interacting]
     Active Substance: OLANZAPINE
     Dosage: 10 MILLIGRAM, DAILY
     Route: 048
  5. OLANZAPINE [Interacting]
     Active Substance: OLANZAPINE
     Dosage: 400 MILLIGRAM, DAILY
     Route: 048
  6. AMISULPRIDE [Interacting]
     Active Substance: AMISULPRIDE
     Indication: Dementia
     Dosage: 200 MILLIGRAM, TWO TIMES A DAY
     Route: 048
  7. AMISULPRIDE [Interacting]
     Active Substance: AMISULPRIDE
     Indication: Delusional disorder, unspecified type
  8. NICOTINE [Interacting]
     Active Substance: NICOTINE
     Indication: Tobacco user
     Dosage: UNK
     Route: 062
  9. NICOTINE [Interacting]
     Active Substance: NICOTINE
     Indication: Drug withdrawal maintenance therapy
  10. ATORVASTATIN [Concomitant]
     Active Substance: ATORVASTATIN
     Indication: Product used for unknown indication
     Dosage: 10 MILLIGRAM, ONCE A DAY
     Route: 048
  11. RIVASTIGMINE [Concomitant]
     Active Substance: RIVASTIGMINE
     Indication: Product used for unknown indication
     Dosage: 9.5 MILLIGRAM, ONCE A DAY (10 MG)
     Route: 062
  12. RIVASTIGMINE [Concomitant]
     Active Substance: RIVASTIGMINE
     Dosage: 9.5 MILLIGRAM, ONCE A DAY (10 MG)
     Route: 062
  13. AMPICILLIN SODIUM\SULBACTAM SODIUM [Concomitant]
     Active Substance: AMPICILLIN SODIUM\SULBACTAM SODIUM
     Indication: Pneumonia haemophilus
     Dosage: UNK
     Route: 065
  14. AMPICILLIN SODIUM\SULBACTAM SODIUM [Concomitant]
     Active Substance: AMPICILLIN SODIUM\SULBACTAM SODIUM
     Indication: Pneumonia
  15. OXYGEN [Concomitant]
     Active Substance: OXYGEN
     Indication: Pneumonia haemophilus
     Dosage: UNK
     Route: 065

REACTIONS (10)
  - Tobacco interaction [Recovered/Resolved]
  - Electrocardiogram QT prolonged [Recovering/Resolving]
  - Electrocardiogram abnormal [Recovered/Resolved]
  - Hypotonia [Recovered/Resolved]
  - Somnolence [Recovered/Resolved]
  - Transaminases increased [Unknown]
  - Antipsychotic drug level increased [Unknown]
  - Therapy partial responder [Unknown]
  - Off label use [Unknown]
  - Overdose [Recovered/Resolved]
